FAERS Safety Report 6786074-1 (Version None)
Quarter: 2010Q2

REPORT INFORMATION
  Report Type: 
  Country: None (occurrence: None)
  Receive Date: 20100623
  Receipt Date: 20100614
  Transmission Date: 20101027
  Serious: Yes (Hospitalization)
  Sender: FDA-Public Use
  Company Number: PHHY2010FR38807

PATIENT
  Sex: Female

DRUGS (3)
  1. STALEVO 100 [Suspect]
     Indication: PARKINSON'S DISEASE
     Dosage: 4 DF, QD
     Route: 048
     Dates: start: 20080101
  2. DEROXAT [Suspect]
     Dosage: 0.5 DF, QD
     Route: 048
  3. AZILECT [Suspect]
     Indication: PARKINSON'S DISEASE
     Dosage: 1 DF, QD
     Dates: start: 20100301

REACTIONS (6)
  - AMNESIA [None]
  - FALL [None]
  - LOSS OF CONSCIOUSNESS [None]
  - PUBIS FRACTURE [None]
  - SKIN INJURY [None]
  - SYNCOPE [None]
